FAERS Safety Report 17034092 (Version 3)
Quarter: 2020Q1

REPORT INFORMATION
  Report Type: Report from Study
  Country: US (occurrence: US)
  Receive Date: 20191114
  Receipt Date: 20200328
  Transmission Date: 20200409
  Serious: No
  Sender: FDA-Public Use
  Company Number: US-009507513-1911USA005362

PATIENT
  Sex: Female

DRUGS (1)
  1. IMPLANON [Suspect]
     Active Substance: ETONOGESTREL
     Dosage: STRENGTH:68 MILLIGRAM, 1 UNIT
     Route: 059

REACTIONS (4)
  - Product quality issue [Unknown]
  - No adverse event [Unknown]
  - Wrong technique in product usage process [Unknown]
  - Device expulsion [Unknown]
